FAERS Safety Report 16198019 (Version 1)
Quarter: 2019Q2

REPORT INFORMATION
  Report Type: Spontaneous
  Country: US (occurrence: US)
  Receive Date: 20190415
  Receipt Date: 20190415
  Transmission Date: 20190711
  Serious: No
  Sender: FDA-Public Use
  Company Number: US-009507513-1904USA003989

PATIENT
  Age: 33 Year
  Sex: Female

DRUGS (1)
  1. SIVEXTRO [Suspect]
     Active Substance: TEDIZOLID PHOSPHATE
     Indication: INFECTION
     Dosage: 200 MILLIGRAM, QD (1 TIMES PER DAY)
     Route: 048
     Dates: start: 20190404

REACTIONS (8)
  - Limb injury [Unknown]
  - Nausea [Recovering/Resolving]
  - Gastrooesophageal reflux disease [Unknown]
  - Malaise [Unknown]
  - Headache [Recovering/Resolving]
  - Fall [Unknown]
  - Dry mouth [Not Recovered/Not Resolved]
  - Dizziness [Unknown]

NARRATIVE: CASE EVENT DATE: 20190404
